FAERS Safety Report 18729399 (Version 1)
Quarter: 2021Q1

REPORT INFORMATION
  Report Type: Spontaneous
  Country: US (occurrence: US)
  Receive Date: 20210111
  Receipt Date: 20210111
  Transmission Date: 20210419
  Serious: No
  Sender: FDA-Public Use
  Company Number: None

PATIENT
  Age: 4 Month
  Sex: Male

DRUGS (1)
  1. HEMANGEOL [Suspect]
     Active Substance: PROPRANOLOL HYDROCHLORIDE
     Indication: HAEMANGIOMA
     Dosage: ?          OTHER DOSE:1MLX7D, 2MLX7D, 2.;?
     Route: 048
     Dates: start: 20201211

REACTIONS (4)
  - Lethargy [None]
  - Irritability [None]
  - Diarrhoea [None]
  - Hypersomnia [None]

NARRATIVE: CASE EVENT DATE: 20201214
